FAERS Safety Report 7508661-5 (Version None)
Quarter: 2011Q2

REPORT INFORMATION
  Report Type: 
  Country: None (occurrence: None)
  Receive Date: 20110527
  Receipt Date: 20100505
  Transmission Date: 20111010
  Serious: No
  Sender: FDA-Public Use
  Company Number: A0858385A

PATIENT
  Age: 68 Year
  Sex: Male

DRUGS (2)
  1. VENTOLIN [Suspect]
     Indication: MULTIPLE ALLERGIES
     Dosage: 1PUFF AS REQUIRED
     Route: 055
  2. ADVAIR DISKUS 100/50 [Concomitant]

REACTIONS (2)
  - PRODUCT QUALITY ISSUE [None]
  - DRUG INEFFECTIVE [None]
